FAERS Safety Report 6589886-2 (Version None)
Quarter: 2010Q1

REPORT INFORMATION
  Report Type: 
  Country: None (occurrence: None)
  Receive Date: 20100219
  Receipt Date: 20100217
  Transmission Date: 20100710
  Serious: Yes (Life-Threatening, Hospitalization, Other)
  Sender: FDA-Public Use
  Company Number: DE-JNJFOC-20100106726

PATIENT
  Sex: Female
  Weight: 90 kg

DRUGS (3)
  1. RISPERDAL CONSTA [Suspect]
     Indication: SCHIZOAFFECTIVE DISORDER
     Route: 030
     Dates: end: 20100113
  2. VALPROAT [Concomitant]
     Indication: EPILEPSY
     Route: 048
  3. KEPPRA [Concomitant]
     Indication: EPILEPSY
     Route: 048

REACTIONS (4)
  - CONVULSION [None]
  - HEADACHE [None]
  - HEMIPARESIS [None]
  - INTRACRANIAL VENOUS SINUS THROMBOSIS [None]
